FAERS Safety Report 16196282 (Version 2)
Quarter: 2019Q2

REPORT INFORMATION
  Report Type: Spontaneous
  Country: ES (occurrence: ES)
  Receive Date: 20190415
  Receipt Date: 20190417
  Transmission Date: 20190711
  Serious: Yes (Other)
  Sender: FDA-Public Use
  Company Number: ES-ROCHE-2290959

PATIENT
  Age: 23 Year
  Sex: Female
  Weight: 91 kg

DRUGS (10)
  1. METHOTREXATE. [Suspect]
     Active Substance: METHOTREXATE
     Indication: TAKAYASU^S ARTERITIS
     Route: 048
  2. AMLODIPIN [Concomitant]
     Active Substance: AMLODIPINE BESYLATE
     Indication: HYPERTENSION
     Route: 048
     Dates: start: 201711
  3. BISOPROLOL [Concomitant]
     Active Substance: BISOPROLOL
     Indication: HYPERTENSION
     Route: 048
     Dates: start: 201711
  4. FOLIC ACID. [Concomitant]
     Active Substance: FOLIC ACID
     Indication: TAKAYASU^S ARTERITIS
     Route: 048
     Dates: start: 201001
  5. PREDNISONE. [Concomitant]
     Active Substance: PREDNISONE
     Route: 065
  6. ADIRO [Concomitant]
     Active Substance: ASPIRIN
     Route: 065
  7. CITALOPRAM [Concomitant]
     Active Substance: CITALOPRAM HYDROBROMIDE
     Route: 065
  8. ROACTEMRA [Suspect]
     Active Substance: TOCILIZUMAB
     Indication: TAKAYASU^S ARTERITIS
     Route: 042
     Dates: start: 201101
  9. OMEPRAZOLE. [Concomitant]
     Active Substance: OMEPRAZOLE
     Route: 065
  10. FENTANYL. [Concomitant]
     Active Substance: FENTANYL
     Dosage: PATCH
     Route: 065

REACTIONS (4)
  - Off label use [Unknown]
  - Intentional product use issue [Unknown]
  - Abortion spontaneous [Unknown]
  - Maternal exposure during pregnancy [Unknown]
